FAERS Safety Report 23947935 (Version 1)
Quarter: 2024Q2

REPORT INFORMATION
  Report Type: Report from Study
  Country: US (occurrence: US)
  Receive Date: 20240606
  Receipt Date: 20240606
  Transmission Date: 20240716
  Serious: Yes (Hospitalization)
  Sender: FDA-Public Use
  Company Number: US-ABBVIE-5787990

PATIENT
  Age: 54 Year
  Sex: Female
  Weight: 63 kg

DRUGS (1)
  1. HUMIRA [Suspect]
     Active Substance: ADALIMUMAB
     Indication: Psoriasis
     Dosage: FORM STRENGTH: 40MG
     Route: 058
     Dates: start: 202401

REACTIONS (3)
  - Accident [Recovered/Resolved]
  - Concussion [Not Recovered/Not Resolved]
  - Head injury [Recovering/Resolving]

NARRATIVE: CASE EVENT DATE: 20240518
